FAERS Safety Report 6728432-7 (Version None)
Quarter: 2010Q2

REPORT INFORMATION
  Report Type: 
  Country: None (occurrence: None)
  Receive Date: 20100517
  Receipt Date: 20100504
  Transmission Date: 20101027
  Serious: Yes (Hospitalization)
  Sender: FDA-Public Use
  Company Number: US-ELI_LILLY_AND_COMPANY-US201005002583

PATIENT
  Sex: Female

DRUGS (7)
  1. FORTEO [Suspect]
     Indication: OSTEOPOROSIS
     Dosage: 20 UG, DAILY (1/D)
     Dates: start: 20090101
  2. OXYCONTIN [Concomitant]
     Indication: PAIN
  3. HYDROCHLOROTHIAZIDE [Concomitant]
     Dosage: 20 MG, UNK
  4. LYRICA [Concomitant]
     Indication: NEURALGIA
  5. DOXEPIN HCL [Concomitant]
  6. VISTARIL [Concomitant]
  7. VITAMIN TAB [Concomitant]

REACTIONS (3)
  - DEVICE DISLOCATION [None]
  - GASTROINTESTINAL PAIN [None]
  - SPINAL DISORDER [None]
